FAERS Safety Report 24293182 (Version 1)
Quarter: 2024Q3

REPORT INFORMATION
  Report Type: Spontaneous
  Country: US (occurrence: None)
  Receive Date: 20240906
  Receipt Date: 20240906
  Transmission Date: 20241017
  Serious: No
  Sender: DOMPE FARMACEUTICI
  Company Number: US-FARMAPROD-202312-3584

PATIENT
  Age: 59 Year
  Sex: Female

DRUGS (17)
  1. OXERVATE [Suspect]
     Active Substance: CENEGERMIN-BKBJ
     Indication: Neurotrophic keratopathy
     Route: 047
     Dates: start: 20231122
  2. OXERVATE [Suspect]
     Active Substance: CENEGERMIN-BKBJ
  3. PREDNISOLONE [Concomitant]
     Active Substance: PREDNISOLONE
     Dosage: ACETATE
  4. REFRESH TEARS [Concomitant]
     Active Substance: CARBOXYMETHYLCELLULOSE SODIUM
  5. MEDROL [Concomitant]
     Active Substance: METHYLPREDNISOLONE
     Dosage: DOSE PACK
  6. NABUMETONE [Concomitant]
     Active Substance: NABUMETONE
  7. BUPROPION [Concomitant]
     Active Substance: BUPROPION
  8. TOPIRAMATE [Concomitant]
     Active Substance: TOPIRAMATE
  9. CHLORZOXAZONE [Concomitant]
     Active Substance: CHLORZOXAZONE
  10. ACETAMINOPHEN\OXYCODONE HYDROCHLORIDE [Concomitant]
     Active Substance: ACETAMINOPHEN\OXYCODONE HYDROCHLORIDE
  11. FENTANYL [Concomitant]
     Active Substance: FENTANYL\FENTANYL CITRATE
     Dosage: 12 MICROGRAM/HOUR-72 HOURS
  12. LEVOTHYROXINE SODIUM [Concomitant]
     Active Substance: LEVOTHYROXINE SODIUM
  13. METHYLPHENIDATE HYDROCHLORIDE [Concomitant]
     Active Substance: METHYLPHENIDATE HYDROCHLORIDE
  14. OFLOXACIN [Concomitant]
     Active Substance: OFLOXACIN
  15. ALREX [Concomitant]
     Active Substance: LOTEPREDNOL ETABONATE
  16. GENTEAL NIGHT-TIME PM [Concomitant]
     Active Substance: MINERAL OIL\PETROLATUM
     Dosage: OCULUS SINISTER
  17. VANCOMYCIN [Concomitant]
     Active Substance: VANCOMYCIN
     Dosage: OCULUS SINISTER

REACTIONS (4)
  - Eye pain [Unknown]
  - Photophobia [Unknown]
  - Product dose omission issue [Unknown]
  - Illness [Recovered/Resolved]

NARRATIVE: CASE EVENT DATE: 20231101
